FAERS Safety Report 14485829 (Version 1)
Quarter: 2018Q1

REPORT INFORMATION
  Report Type: Spontaneous
  Country: US (occurrence: US)
  Receive Date: 20180203
  Receipt Date: 20180203
  Transmission Date: 20180509
  Serious: Yes (Death)
  Sender: FDA-Public Use
  Company Number: None

PATIENT
  Age: 49 Year
  Sex: Female

DRUGS (32)
  1. AVASTIN [Concomitant]
     Active Substance: BEVACIZUMAB
  2. LANSOPRAZOLE. [Concomitant]
     Active Substance: LANSOPRAZOLE
  3. ONDANSETRON [Concomitant]
     Active Substance: ONDANSETRON
  4. CARBOPLATIN POTASSIUM [Concomitant]
  5. CETIRIZINE [Concomitant]
     Active Substance: CETIRIZINE HYDROCHLORIDE
  6. ZOLPIDEM [Concomitant]
     Active Substance: ZOLPIDEM\ZOLPIDEM TARTRATE
  7. K-TAB [Concomitant]
     Active Substance: POTASSIUM CHLORIDE
  8. ELIQUIS [Concomitant]
     Active Substance: APIXABAN
  9. OXYCONTIN [Concomitant]
     Active Substance: OXYCODONE HYDROCHLORIDE
  10. OXYCODONE [Concomitant]
     Active Substance: OXYCODONE
  11. CANDESARTAN. [Concomitant]
     Active Substance: CANDESARTAN
  12. CYCLOENZAPR [Concomitant]
  13. LETROZOLE. [Concomitant]
     Active Substance: LETROZOLE
  14. FUROSEMIDE. [Concomitant]
     Active Substance: FUROSEMIDE
  15. IBUPROFEN. [Concomitant]
     Active Substance: IBUPROFEN
  16. DOCETAXEL. [Concomitant]
     Active Substance: DOCETAXEL
  17. DOCGLACO [Concomitant]
  18. PACLITAXEL. [Concomitant]
     Active Substance: PACLITAXEL
  19. POT CHLORIDE [Concomitant]
     Active Substance: POTASSIUM CHLORIDE
  20. HYDROXYZ HCL [Concomitant]
     Active Substance: HYDROXYZINE HYDROCHLORIDE
  21. IBRANCE [Suspect]
     Active Substance: PALBOCICLIB
     Indication: BREAST CANCER
     Dosage: FREQUENCY - QD X 21
     Route: 048
     Dates: start: 20170919, end: 2018
  22. DULOXETINE. [Concomitant]
     Active Substance: DULOXETINE
  23. VITAMIN D3 [Concomitant]
     Active Substance: CHOLECALCIFEROL
  24. IBUPROFEN. [Concomitant]
     Active Substance: IBUPROFEN
  25. METOLAZONE. [Concomitant]
     Active Substance: METOLAZONE
  26. NABELVINE [Concomitant]
  27. ABRAXANE [Concomitant]
     Active Substance: PACLITAXEL
  28. EXEMESTANE. [Concomitant]
     Active Substance: EXEMESTANE
  29. PREVIDENT [Concomitant]
     Active Substance: SODIUM FLUORIDE
  30. PROCHLORPER [Concomitant]
  31. DEXILANT [Concomitant]
     Active Substance: DEXLANSOPRAZOLE
  32. MONTELUKAST [Concomitant]
     Active Substance: MONTELUKAST SODIUM

REACTIONS (1)
  - Death [None]

NARRATIVE: CASE EVENT DATE: 201802
